FAERS Safety Report 13304480 (Version 1)
Quarter: 2017Q1

REPORT INFORMATION
  Report Type: Spontaneous
  Country: CA (occurrence: CA)
  Receive Date: 20170308
  Receipt Date: 20170308
  Transmission Date: 20170428
  Serious: Yes (Life-Threatening, Other)
  Sender: FDA-Public Use
  Company Number: CA-TEVA-746311ACC

PATIENT
  Age: 26 Year
  Sex: Female

DRUGS (1)
  1. SULFAMETHOXAZOLE\TRIMETHOPRIM [Suspect]
     Active Substance: SULFAMETHOXAZOLE\TRIMETHOPRIM
     Indication: ANTIBIOTIC THERAPY
     Route: 048

REACTIONS (7)
  - Heart rate increased [Unknown]
  - Therapy change [Unknown]
  - Body temperature increased [Unknown]
  - Shock [Unknown]
  - Hypotension [Unknown]
  - Condition aggravated [Unknown]
  - Pruritus generalised [Unknown]
